FAERS Safety Report 10715129 (Version 3)
Quarter: 2015Q2

REPORT INFORMATION
  Report Type: Spontaneous
  Country: US (occurrence: US)
  Receive Date: 20150115
  Receipt Date: 20150520
  Transmission Date: 20150821
  Serious: Yes (Hospitalization, Other)
  Sender: FDA-Public Use
  Company Number: US-GLAXOSMITHKLINE-US2015004880

PATIENT
  Age: 55 Year
  Sex: Female
  Weight: 117.37 kg

DRUGS (9)
  1. XANAX [Concomitant]
     Active Substance: ALPRAZOLAM
  2. TIZANIDINE (TIZANIDINE) [Concomitant]
     Active Substance: TIZANIDINE
  3. LEVOTHYROXINE [Concomitant]
     Active Substance: LEVOTHYROXINE
  4. TEMAZEPAM. [Concomitant]
     Active Substance: TEMAZEPAM
  5. ANORO ELLIPTA [Suspect]
     Active Substance: UMECLIDINIUM BROMIDE\VILANTEROL TRIFENATATE
     Indication: CHRONIC OBSTRUCTIVE PULMONARY DISEASE
     Dosage: 1 PUFF(S), QD
     Dates: start: 201410
  6. BELVIQ [Concomitant]
     Active Substance: LORCASERIN HYDROCHLORIDE
  7. GLYBURIDE + METFORMIN [Concomitant]
  8. LORTAB [Concomitant]
     Active Substance: ACETAMINOPHEN\HYDROCODONE BITARTRATE
  9. PAROXETINE [Concomitant]
     Active Substance: PAROXETINE\PAROXETINE HYDROCHLORIDE

REACTIONS (6)
  - Weight decreased [Unknown]
  - Dyspnoea [Recovering/Resolving]
  - Blood pressure decreased [Recovering/Resolving]
  - Oxygen saturation decreased [Unknown]
  - Hospitalisation [Unknown]
  - Visual impairment [Unknown]

NARRATIVE: CASE EVENT DATE: 201410
